FAERS Safety Report 10977240 (Version 1)
Quarter: 2015Q2

REPORT INFORMATION
  Report Type: Spontaneous
  Country: US (occurrence: None)
  Receive Date: 20150401
  Receipt Date: 20150401
  Transmission Date: 20150821
  Serious: Yes (Other)
  Sender: FDA-Public Use
  Company Number: None

PATIENT
  Age: 75 Year
  Sex: Female
  Weight: 54.43 kg

DRUGS (1)
  1. DULOXETINE [Suspect]
     Active Substance: DULOXETINE
     Indication: FIBROMYALGIA
     Dosage: 1 THEN 2, THEN 3 CAPSULES DAILY, 1 1X DAILY, 2 2X DAILY THEN, 3 3X DAILY.
     Route: 048
     Dates: start: 20150116

REACTIONS (11)
  - Drug ineffective [None]
  - Irritability [None]
  - Dizziness [None]
  - Vomiting [None]
  - Drug withdrawal syndrome [None]
  - Abdominal discomfort [None]
  - Paraesthesia [None]
  - Hyperhidrosis [None]
  - Fall [None]
  - Disturbance in attention [None]
  - Balance disorder [None]

NARRATIVE: CASE EVENT DATE: 201503
